FAERS Safety Report 6865613-6 (Version None)
Quarter: 2010Q3

REPORT INFORMATION
  Report Type: 
  Country: None (occurrence: None)
  Receive Date: 20100720
  Receipt Date: 20100709
  Transmission Date: 20110219
  Serious: Yes (Hospitalization, Other)
  Sender: FDA-Public Use
  Company Number: 2010MA000711

PATIENT
  Age: 59 Year
  Sex: Female

DRUGS (8)
  1. NAPROXEN [Suspect]
     Indication: ARTHROPATHY
     Dosage: PRN
  2. PREDNISOLONE [Concomitant]
  3. IBUX [Concomitant]
  4. ETALPHA [Concomitant]
  5. TRIMETHOPRIM [Concomitant]
  6. DIOVAN [Concomitant]
  7. PROGRAF [Concomitant]
  8. CARVEDILOL [Concomitant]

REACTIONS (7)
  - ASTHENIA [None]
  - FAECES DISCOLOURED [None]
  - FAECES HARD [None]
  - GASTROINTESTINAL ULCER [None]
  - GENERAL PHYSICAL HEALTH DETERIORATION [None]
  - HYPOTENSION [None]
  - OCCULT BLOOD POSITIVE [None]
